FAERS Safety Report 7994067-1 (Version None)
Quarter: 2011Q4

REPORT INFORMATION
  Report Type: 
  Country: None (occurrence: None)
  Receive Date: 20111220
  Receipt Date: 20111208
  Transmission Date: 20120403
  Serious: Yes (Hospitalization, Other)
  Sender: FDA-Public Use
  Company Number: US-BAYER-2011-040676

PATIENT
  Sex: Female
  Weight: 72.562 kg

DRUGS (3)
  1. YASMIN [Suspect]
     Indication: CONTRACEPTION
     Dosage: UNK
     Dates: start: 20030101, end: 20040101
  2. YASMIN [Suspect]
     Dosage: UNK
     Dates: start: 20050101, end: 20070101
  3. DROSPIRENONE AND ETHINYL ESTRADIOL [Suspect]
     Indication: CONTRACEPTION
     Dosage: UNK
     Dates: start: 20070101, end: 20100101

REACTIONS (12)
  - ABDOMINAL PAIN [None]
  - GENERAL PHYSICAL HEALTH DETERIORATION [None]
  - PROCEDURAL PAIN [None]
  - INJURY [None]
  - ANXIETY [None]
  - CHOLECYSTITIS CHRONIC [None]
  - CHOLELITHIASIS [None]
  - GALLBLADDER CHOLESTEROLOSIS [None]
  - PAIN [None]
  - EMOTIONAL DISTRESS [None]
  - ABDOMINAL PAIN UPPER [None]
  - DISCOMFORT [None]
